FAERS Safety Report 7223347-2 (Version None)
Quarter: 2011Q1

REPORT INFORMATION
  Report Type: 
  Country: None (occurrence: None)
  Receive Date: 20110112
  Receipt Date: 20100512
  Transmission Date: 20110831
  Serious: No
  Sender: FDA-Public Use
  Company Number: US-ALLERGAN-1006241US

PATIENT
  Sex: Male

DRUGS (17)
  1. BOTOXA? [Concomitant]
     Indication: EYELID DISORDER
     Dosage: EVERY 6 MONTHS
     Route: 030
  2. RESTASIS [Suspect]
     Indication: DRY EYE
     Dosage: UNK
     Route: 047
     Dates: start: 20100310
  3. SYSTANE [Concomitant]
  4. GENTEAL [Concomitant]
  5. FISH OIL [Concomitant]
  6. FINASTERIDE [Concomitant]
  7. POTASSIUM [Concomitant]
     Dosage: 10 MG, UNK
  8. LISINOPRIL [Concomitant]
  9. WARFARIN [Concomitant]
  10. PAXIL [Concomitant]
  11. CRESTOR [Concomitant]
  12. LEVOXYL [Concomitant]
  13. CARVEDILOL [Concomitant]
  14. RESTORIL [Concomitant]
  15. ZETIA [Concomitant]
  16. TRIAMTERENE [Concomitant]
  17. MULTI-VITAMIN [Concomitant]

REACTIONS (2)
  - BLEPHAROSPASM [None]
  - EYE IRRITATION [None]
